FAERS Safety Report 6084343-4 (Version None)
Quarter: 2009Q1

REPORT INFORMATION
  Report Type: 
  Country: None (occurrence: None)
  Receive Date: 20090219
  Receipt Date: 20090213
  Transmission Date: 20090719
  Serious: Yes (Hospitalization)
  Sender: FDA-Public Use
  Company Number: NL-ASTRAZENECA-2009AC00571

PATIENT
  Sex: Male

DRUGS (1)
  1. CASODEX [Suspect]
     Indication: PROSTATE CANCER
     Route: 048

REACTIONS (6)
  - FALL [None]
  - FATIGUE [None]
  - HEAD INJURY [None]
  - POISONING [None]
  - RESPIRATION ABNORMAL [None]
  - YELLOW SKIN [None]
